FAERS Safety Report 7166990-1 (Version None)
Quarter: 2010Q4

REPORT INFORMATION
  Report Type: 
  Country: None (occurrence: None)
  Receive Date: 20101216
  Receipt Date: 20101213
  Transmission Date: 20110411
  Serious: Yes (Other)
  Sender: FDA-Public Use
  Company Number: A0889149A

PATIENT
  Age: 59 Year
  Sex: Female

DRUGS (1)
  1. IMITREX [Suspect]
     Dosage: 100MG AS DIRECTED
     Route: 048
     Dates: start: 20080630

REACTIONS (2)
  - DRUG DEPENDENCE [None]
  - HEADACHE [None]
